FAERS Safety Report 24018329 (Version 1)
Quarter: 2024Q2

REPORT INFORMATION
  Report Type: Spontaneous
  Country: JP (occurrence: JP)
  Receive Date: 20240627
  Receipt Date: 20240627
  Transmission Date: 20240716
  Serious: Yes (Death, Other)
  Sender: FDA-Public Use
  Company Number: JP-BRISTOL-MYERS SQUIBB COMPANY-2024-102081

PATIENT
  Age: 69 Year
  Sex: Female

DRUGS (1)
  1. NIVOLUMAB [Suspect]
     Active Substance: NIVOLUMAB
     Indication: Angiosarcoma

REACTIONS (4)
  - Immune-mediated pancreatitis [Unknown]
  - Immune-mediated lung disease [Unknown]
  - Respiratory failure [Fatal]
  - Off label use [Unknown]
